FAERS Safety Report 17218777 (Version 4)
Quarter: 2024Q3

REPORT INFORMATION
  Report Type: Spontaneous
  Country: US (occurrence: US)
  Receive Date: 20191231
  Receipt Date: 20240729
  Transmission Date: 20241016
  Serious: No
  Sender: VERTEX
  Company Number: US-VERTEX PHARMACEUTICALS-2019-011779

PATIENT
  Sex: Female

DRUGS (4)
  1. TRIKAFTA [Suspect]
     Active Substance: ELEXACAFTOR\IVACAFTOR\TEZACAFTOR
     Indication: Cystic fibrosis
     Dosage: 100 MG ELEXACAFTOR/50 MG TEZACAFTOR/75 MG IVACAFTOR AND 150 MG IVACAFTOR, BID
     Route: 048
     Dates: start: 20191110, end: 20191126
  2. TRIKAFTA [Suspect]
     Active Substance: ELEXACAFTOR\IVACAFTOR\TEZACAFTOR
     Dosage: MORNING DOSE
     Route: 048
     Dates: start: 20191203, end: 20191203
  3. TRIKAFTA [Suspect]
     Active Substance: ELEXACAFTOR\IVACAFTOR\TEZACAFTOR
     Dosage: UNKNOWN DOSAGE REGIMEN
     Route: 048
     Dates: start: 20200106
  4. TOBI PODHALER [Concomitant]
     Active Substance: TOBRAMYCIN

REACTIONS (4)
  - Feeling abnormal [Unknown]
  - Productive cough [Unknown]
  - Rash erythematous [Recovered/Resolved]
  - Rash [Recovered/Resolved]

NARRATIVE: CASE EVENT DATE: 20190101
